FAERS Safety Report 24101015 (Version 6)
Quarter: 2025Q4

REPORT INFORMATION
  Report Type: Spontaneous
  Country: US (occurrence: US)
  Receive Date: 20240717
  Receipt Date: 20251222
  Transmission Date: 20260118
  Serious: Yes (Hospitalization, Other)
  Sender: NOVO NORDISK
  Company Number: US-NOVOPROD-1225927

PATIENT
  Age: 41 Year
  Sex: Female
  Weight: 83.9 kg

DRUGS (9)
  1. MOUNJARO [Suspect]
     Active Substance: TIRZEPATIDE
     Indication: Type 2 diabetes mellitus
     Dosage: 2 MG QD
     Dates: start: 20230401, end: 20230601
  2. MOUNJARO [Suspect]
     Active Substance: TIRZEPATIDE
     Dosage: 7 MG, QW
     Dates: start: 20230815, end: 20230901
  3. MOUNJARO [Suspect]
     Active Substance: TIRZEPATIDE
     Indication: Obesity
     Dosage: 5 MG, QW
     Dates: start: 20230601, end: 20230801
  4. WEGOVY [Suspect]
     Active Substance: SEMAGLUTIDE
     Indication: Type 2 diabetes mellitus
  5. WEGOVY [Suspect]
     Active Substance: SEMAGLUTIDE
     Indication: Obesity
     Dosage: 0.25 MG, QW
     Dates: start: 202107, end: 20220101
  6. VICTOZA [Suspect]
     Active Substance: LIRAGLUTIDE
     Indication: Obesity
  7. VICTOZA [Suspect]
     Active Substance: LIRAGLUTIDE
     Indication: Type 2 diabetes mellitus
     Dosage: 1.8 MG, QD
     Dates: start: 20161001, end: 20161201
  8. RYBELSUS [Suspect]
     Active Substance: SEMAGLUTIDE
     Indication: Obesity
  9. RYBELSUS [Suspect]
     Active Substance: SEMAGLUTIDE
     Indication: Type 2 diabetes mellitus
     Dosage: UNK
     Dates: start: 20210101, end: 202210

REACTIONS (7)
  - Intussusception [Unknown]
  - Intestinal obstruction [Recovered/Resolved]
  - Cholecystectomy [Unknown]
  - Dehydration [Recovered/Resolved]
  - Decreased appetite [Recovered/Resolved]
  - Diarrhoea [Recovered/Resolved]
  - Off label use [Unknown]

NARRATIVE: CASE EVENT DATE: 20161001
